FAERS Safety Report 9470150 (Version 2)
Quarter: 2013Q3

REPORT INFORMATION
  Report Type: Spontaneous
  Country: US (occurrence: US)
  Receive Date: 20130822
  Receipt Date: 20130822
  Transmission Date: 20140515
  Serious: Yes (Death)
  Sender: FDA-Public Use
  Company Number: US-COVIDIEN/TYCO HEALTHCARE/MALLINCKRODT-T201204498

PATIENT
  Age: 15 Year
  Sex: Male

DRUGS (3)
  1. GABLOFEN [Suspect]
     Indication: MUSCLE SPASTICITY
     Dosage: 464 MCG/DAY
     Route: 037
  2. GABLOFEN [Suspect]
     Dosage: 150 MCG/DAY
     Route: 037
     Dates: start: 20120405
  3. GABLOFEN [Suspect]
     Dosage: 50 MCG BOLUS
     Route: 037
     Dates: start: 20120405, end: 20120405

REACTIONS (7)
  - Somnolence [Unknown]
  - Nasopharyngitis [Unknown]
  - Hypertonia [Unknown]
  - Irritability [Unknown]
  - Hyperhidrosis [Unknown]
  - Agitation [Unknown]
  - Constipation [Recovering/Resolving]
